FAERS Safety Report 9476907 (Version 1)
Quarter: 2013Q3

REPORT INFORMATION
  Report Type: Report from Study
  Country: FR (occurrence: FR)
  Receive Date: 20130826
  Receipt Date: 20130826
  Transmission Date: 20140515
  Serious: Yes (Other)
  Sender: FDA-Public Use
  Company Number: FR-GLAXOSMITHKLINE-B0916909A

PATIENT
  Age: 76 Year
  Sex: Female
  Weight: 79 kg

DRUGS (11)
  1. MELPHALAN [Suspect]
     Indication: PLASMA CELL MYELOMA
     Dosage: .25MGK PER DAY
     Route: 048
     Dates: start: 20101025, end: 20101205
  2. THALIDOMIDE [Suspect]
     Indication: PLASMA CELL MYELOMA
     Dosage: 200MG PER DAY
     Route: 048
     Dates: start: 20101025, end: 20101205
  3. PREDNISONE [Suspect]
     Indication: PLASMA CELL MYELOMA
     Dosage: 2MGK PER DAY
     Route: 048
     Dates: start: 20101025, end: 20101205
  4. LYTOS [Concomitant]
     Indication: PROPHYLAXIS
     Dosage: 1040MG PER DAY
     Dates: start: 20101025
  5. LEVOTHYROXINE [Concomitant]
     Indication: AUTOIMMUNE THYROIDITIS
     Dosage: 175MCG PER DAY
     Dates: start: 1990
  6. LOXEN [Concomitant]
     Indication: HYPERTENSION
     Dosage: 40MG PER DAY
     Dates: start: 201010
  7. ACETYLSALICYLATE LYSINE [Concomitant]
     Indication: THROMBOSIS PROPHYLAXIS
     Dosage: 100MG PER DAY
     Route: 048
     Dates: start: 20101025
  8. EFFERALGAN CODEINE [Concomitant]
     Indication: BONE PAIN
     Dosage: 6TAB PER DAY
     Route: 048
     Dates: start: 20100914
  9. GAVISON [Concomitant]
     Indication: GASTROOESOPHAGEAL REFLUX PROPHYLAXIS
     Route: 048
     Dates: start: 20120316
  10. LANSOPRAZOLE [Concomitant]
     Indication: GASTROOESOPHAGEAL REFLUX PROPHYLAXIS
     Dosage: 30MG PER DAY
     Route: 048
     Dates: start: 20120316
  11. FORLAX [Concomitant]
     Indication: CONSTIPATION
     Route: 048
     Dates: start: 20101026

REACTIONS (1)
  - Basal cell carcinoma [Not Recovered/Not Resolved]
